FAERS Safety Report 16396758 (Version 1)
Quarter: 2019Q2

REPORT INFORMATION
  Report Type: Spontaneous
  Country: None (occurrence: US)
  Receive Date: 20190606
  Receipt Date: 20190606
  Transmission Date: 20190711
  Serious: Yes (Death, Other)
  Sender: FDA-Public Use
  Company Number: US-JIANGSU HENGRUI MEDICINE CO., LTD.-2067845

PATIENT
  Age: 7 Year
  Sex: Male

DRUGS (5)
  1. LISINOPRIL. [Concomitant]
     Active Substance: LISINOPRIL
  2. AMLODIPINE [Concomitant]
     Active Substance: AMLODIPINE BESYLATE
  3. CYCLOPHOSPHAMIDE FOR INJECTION USP, 500 MG, 1 G AND 2 G PER SINGLE-DOS [Suspect]
     Active Substance: CYCLOPHOSPHAMIDE
     Indication: ACUTE LYMPHOCYTIC LEUKAEMIA
  4. ANAKINRA [Concomitant]
     Active Substance: ANAKINRA
  5. TOCILIZUMAB. [Concomitant]
     Active Substance: TOCILIZUMAB

REACTIONS (14)
  - Cardio-respiratory arrest [Fatal]
  - Blood lactic acid increased [Unknown]
  - Abdominal distension [Unknown]
  - Coagulopathy [Unknown]
  - Venoocclusive disease [Unknown]
  - Hypoxia [Unknown]
  - Pulmonary oedema [Unknown]
  - Liver function test abnormal [Unknown]
  - Cerebral haemorrhage [Fatal]
  - Cytokine release syndrome [Fatal]
  - Shock haemorrhagic [Unknown]
  - Multiple organ dysfunction syndrome [Fatal]
  - Retrograde portal vein flow [Unknown]
  - Hepatic congestion [Unknown]

NARRATIVE: CASE EVENT DATE: 20190503
